FAERS Safety Report 11126957 (Version 1)
Quarter: 2015Q2

REPORT INFORMATION
  Report Type: Spontaneous
  Country: SE (occurrence: SE)
  Receive Date: 20150521
  Receipt Date: 20150521
  Transmission Date: 20150821
  Serious: Yes (Other)
  Sender: FDA-Public Use
  Company Number: SE-JNJFOC-20150509113

PATIENT
  Age: 74 Year
  Sex: Female

DRUGS (3)
  1. IPREN 400 MG FILMDRAGERAD TABLET [Suspect]
     Active Substance: IBUPROFEN
     Route: 048
  2. IPREN 400 MG FILMDRAGERAD TABLET [Suspect]
     Active Substance: IBUPROFEN
     Indication: PAIN
     Route: 048
     Dates: start: 20140502, end: 20140620
  3. ALVEDON [Concomitant]
     Active Substance: ACETAMINOPHEN
     Indication: PAIN
     Route: 065

REACTIONS (1)
  - Lip swelling [Recovered/Resolved]

NARRATIVE: CASE EVENT DATE: 20140620
